FAERS Safety Report 12201599 (Version 1)
Quarter: 2016Q1

REPORT INFORMATION
  Report Type: Spontaneous
  Country: US (occurrence: US)
  Receive Date: 20160322
  Receipt Date: 20160322
  Transmission Date: 20160526
  Serious: No
  Sender: FDA-Public Use
  Company Number: US-SA-2015SA120348

PATIENT
  Age: 60 Year
  Sex: Female

DRUGS (3)
  1. NASACORT ALLERGY 24HR [Suspect]
     Active Substance: TRIAMCINOLONE ACETONIDE
     Indication: THROAT IRRITATION
     Dosage: DOSAGE: 1 SPRAY/ EACH SIDE?FORM: NASAL SPRAY?START DATE: FIFTH DAY
     Route: 045
  2. NASACORT ALLERGY 24HR [Interacting]
     Active Substance: TRIAMCINOLONE ACETONIDE
     Indication: THROAT IRRITATION
     Dosage: DOSAGE: 2 SPRAY/ EACH SIDE?FORM: NASAL SPRAY
     Route: 045
  3. ESTRACE [Interacting]
     Active Substance: ESTRADIOL
     Dosage: FROM 8 YEARS
     Route: 065

REACTIONS (2)
  - Nervousness [Unknown]
  - Drug interaction [Unknown]
